FAERS Safety Report 16742196 (Version 1)
Quarter: 2019Q3

REPORT INFORMATION
  Report Type: Report from Study
  Country: IT (occurrence: IT)
  Receive Date: 20190826
  Receipt Date: 20190826
  Transmission Date: 20191005
  Serious: Yes (Other)
  Sender: FDA-Public Use
  Company Number: IT-MYLANLABS-2019M1078781

PATIENT
  Age: 17 Year
  Sex: Male

DRUGS (3)
  1. CETIRIZINE [Suspect]
     Active Substance: CETIRIZINE HYDROCHLORIDE
     Indication: HYPERSENSITIVITY
     Dosage: 1 DOSAGE FORM, QD
     Route: 048
  2. PAFINUR [Suspect]
     Active Substance: RUPATADINE FUMARATE
     Indication: OTITIS MEDIA
     Dosage: 1 DOSAGE FORM, QD
     Route: 048
     Dates: start: 20180406, end: 20180409
  3. DEFLAN [Concomitant]
     Active Substance: DEFLAZACORT
     Indication: OTITIS MEDIA
     Dosage: 1 DOSAGE FORM
     Route: 048
     Dates: start: 20180406, end: 20180409

REACTIONS (4)
  - Skin lesion [Recovering/Resolving]
  - Tachycardia [Recovering/Resolving]
  - Pruritus [Recovering/Resolving]
  - Malaise [Recovering/Resolving]

NARRATIVE: CASE EVENT DATE: 20180407
